FAERS Safety Report 16889051 (Version 1)
Quarter: 2019Q4

REPORT INFORMATION
  Report Type: Spontaneous
  Country: GB (occurrence: GB)
  Receive Date: 20191007
  Receipt Date: 20191007
  Transmission Date: 20200122
  Serious: Yes (Other)
  Sender: FDA-Public Use
  Company Number: GB-TEVA-2019-GB-1117673

PATIENT
  Age: 74 Year
  Sex: Female
  Weight: 92.07 kg

DRUGS (7)
  1. FOLPIK XL [Concomitant]
     Active Substance: FELODIPINE
     Dosage: 5 MG
  2. CENTRUM [Concomitant]
     Active Substance: VITAMINS
  3. ATORVASTATIN [Concomitant]
     Active Substance: ATORVASTATIN
     Dosage: 20MG
  4. AMITRIPTYLINE [Concomitant]
     Active Substance: AMITRIPTYLINE
     Dosage: 10 MG
  5. COCODAMOL [Suspect]
     Active Substance: ACETAMINOPHEN\CODEINE PHOSPHATE
     Indication: SPINAL PAIN
     Dosage: 1 OR 2 TO BE TAKEN 4 TIMES A DAY UP TO 8 MAXIMUM
     Route: 048
     Dates: start: 20190909
  6. LANSOPRAZOLE. [Concomitant]
     Active Substance: LANSOPRAZOLE
     Dosage: 15 MG
  7. COD-LIVER OIL [Concomitant]
     Active Substance: COD LIVER OIL
     Dosage: 500 MG

REACTIONS (3)
  - Peripheral swelling [Unknown]
  - Joint swelling [Unknown]
  - Vision blurred [Unknown]

NARRATIVE: CASE EVENT DATE: 20190910
